FAERS Safety Report 17870854 (Version 1)
Quarter: 2020Q2

REPORT INFORMATION
  Report Type: Spontaneous
  Country: US (occurrence: US)
  Receive Date: 20200605
  Receipt Date: 20200605
  Transmission Date: 20200714
  Serious: Yes (Hospitalization)
  Sender: FDA-Public Use
  Company Number: None

PATIENT
  Age: 61 Year
  Sex: Male

DRUGS (18)
  1. OXYCODONE [Concomitant]
     Active Substance: OXYCODONE
  2. TEMAZEPAM. [Concomitant]
     Active Substance: TEMAZEPAM
  3. ZOLIPDEM [Concomitant]
     Active Substance: ZOLPIDEM TARTRATE
  4. METOCLOPRAM [Concomitant]
     Active Substance: METOCLOPRAMIDE
  5. OMEPRAZOLE. [Concomitant]
     Active Substance: OMEPRAZOLE
  6. AMLODIPINE [Concomitant]
     Active Substance: AMLODIPINE BESYLATE
  7. ATROVASTATIN [Concomitant]
     Active Substance: ATORVASTATIN CALCIUM
  8. DULOXETINE. [Concomitant]
     Active Substance: DULOXETINE
  9. MONTELUKAST [Concomitant]
     Active Substance: MONTELUKAST SODIUM
  10. TAMSULOSIN [Concomitant]
     Active Substance: TAMSULOSIN
  11. COSENTYX [Suspect]
     Active Substance: SECUKINUMAB
     Indication: ANKYLOSING SPONDYLITIS
     Dosage: ?          OTHER FREQUENCY:EVERY 4 WEEKS;?
     Route: 058
     Dates: start: 20200420
  12. AMOX [Concomitant]
     Active Substance: UNSPECIFIED INGREDIENT
  13. CYCLOBENZAPR [Concomitant]
     Active Substance: CYCLOBENZAPRINE
  14. DICLOFENAC [Concomitant]
     Active Substance: DICLOFENAC
  15. FINASTERIDE. [Concomitant]
     Active Substance: FINASTERIDE
  16. XTAMPZA [Concomitant]
     Active Substance: OXYCODONE
  17. PREDNISONE. [Concomitant]
     Active Substance: PREDNISONE
  18. PREGABLIN [Concomitant]
     Active Substance: PREGABALIN

REACTIONS (1)
  - Pneumonia [None]
